FAERS Safety Report 21754273 (Version 1)
Quarter: 2022Q4

REPORT INFORMATION
  Report Type: Report from Study
  Country: US (occurrence: US)
  Receive Date: 20221220
  Receipt Date: 20221220
  Transmission Date: 20230113
  Serious: No
  Sender: FDA-Public Use
  Company Number: US-ABBVIE-4243570

PATIENT
  Sex: Male

DRUGS (1)
  1. VENCLEXTA [Suspect]
     Active Substance: VENETOCLAX
     Indication: Chronic lymphocytic leukaemia
     Dosage: WITH FOOD AND A FULL GLASS OF WATER DO NOT CRUSH, CHEW, OR SPLIT; SWALLOW WHOLE, 100 MG
     Route: 048

REACTIONS (2)
  - Skin ulcer [Not Recovered/Not Resolved]
  - Pruritus [Not Recovered/Not Resolved]
